FAERS Safety Report 7822649-6 (Version None)
Quarter: 2011Q4

REPORT INFORMATION
  Report Type: 
  Country: None (occurrence: None)
  Receive Date: 20111018
  Receipt Date: 20111003
  Transmission Date: 20120403
  Serious: Yes (Hospitalization)
  Sender: FDA-Public Use
  Company Number: US-WATSON-2011-16661

PATIENT
  Age: 55 Year
  Sex: Male

DRUGS (1)
  1. TAMOXIFEN CITRATE [Suspect]
     Indication: MESENTERIC PANNICULITIS
     Dosage: UNK

REACTIONS (1)
  - ARTERIAL THROMBOSIS LIMB [None]
